FAERS Safety Report 15820228 (Version 1)
Quarter: 2018Q4

REPORT INFORMATION
  Report Type: Spontaneous
  Country: US (occurrence: US)
  Receive Date: 20181217
  Receipt Date: 20181217
  Transmission Date: 20190205
  Serious: Yes (Death, Life-Threatening, Hospitalization, Disabling)
  Sender: FDA-Public Use
  Company Number: None

PATIENT
  Age: 86 Year
  Sex: Male
  Weight: 65.77 kg

DRUGS (17)
  1. TRICOR 145 MG TABS (FENOFIBRATE) 1/DAY [Concomitant]
  2. TYLENOL PM [Concomitant]
     Active Substance: ACETAMINOPHEN\DIPHENHYDRAMINE
  3. ATORVASTATIN CALCIUM 40MG TABS (ATORVASTATIN CALCIUM) 1 QD [Concomitant]
  4. TYLENOL REGULAR STRENGTH [Concomitant]
     Active Substance: ACETAMINOPHEN
  5. SENOKOT [Concomitant]
     Active Substance: SENNOSIDES
  6. AMLODIPINE BESYLATE 5 MG TABS (AMLODIPINE BESYLATE) 2 DAILY [Concomitant]
  7. ATENOLOL 25 MG TABS (ATENOLOL) 1 / DAY [Concomitant]
  8. VITAMIN D [Concomitant]
     Active Substance: CHOLECALCIFEROL
  9. VITAMIN D2 2000 UNIT TABS (ERGOGALCIFEROL) 1 QD [Concomitant]
  10. DOCUSATE SODIUM. [Concomitant]
     Active Substance: DOCUSATE SODIUM
  11. VALSARTAN 160MG [Suspect]
     Active Substance: VALSARTAN
     Indication: HYPERTENSION
     Route: 048
     Dates: start: 20180115, end: 20180806
  12. VALSARTAN 160MG [Suspect]
     Active Substance: VALSARTAN
  13. CENTRUM SILVER TABS (MULTIPLE VITAMINS-MINERALS) DAILY [Concomitant]
  14. TERAZOSIN HCL 10 MG CAPS (TERAZOSIN HCL) 1/DAY [Concomitant]
  15. ALLOPURINOL 300 MG TABS (ALLOPURINOL) 1 QD [Concomitant]
  16. OMEPRAZOLE CPDR (OMEPRAZOLE CPDR) 1/DAY [Concomitant]
  17. ASPIRIN 81 MG TABS (ASPIRIN) DAILY [Concomitant]

REACTIONS (5)
  - Respiratory failure [None]
  - Alveolitis necrotising [None]
  - Transitional cell carcinoma [None]
  - Pneumonia [None]
  - Blood pressure inadequately controlled [None]

NARRATIVE: CASE EVENT DATE: 201807
